FAERS Safety Report 4673889-9 (Version None)
Quarter: 2005Q2

REPORT INFORMATION
  Report Type: 
  Country: None (occurrence: None)
  Receive Date: 20050525
  Receipt Date: 20050512
  Transmission Date: 20051028
  Serious: Yes (Hospitalization)
  Sender: FDA-Public Use
  Company Number: BR-MERCK-0505BRA00056

PATIENT
  Age: 83 Year
  Sex: Female
  Weight: 50 kg

DRUGS (5)
  1. VIOXX [Suspect]
     Indication: LUMBAR VERTEBRAL FRACTURE
     Route: 048
     Dates: start: 20030501, end: 20030501
  2. CHOLECALCIFEROL [Concomitant]
     Indication: OSTEOPOROSIS
     Route: 048
  3. RIBOFLAVIN [Concomitant]
     Indication: ASTHENIA
     Route: 048
  4. BENSERAZIDE HYDROCHLORIDE AND LEVODOPA [Concomitant]
     Indication: PARKINSON'S DISEASE
     Route: 048
     Dates: start: 19970101, end: 20041101
  5. BENSERAZIDE HYDROCHLORIDE AND LEVODOPA [Concomitant]
     Route: 048
     Dates: start: 20041101

REACTIONS (1)
  - ARRHYTHMIA [None]
